FAERS Safety Report 12346561 (Version 1)
Quarter: 2016Q2

REPORT INFORMATION
  Report Type: Spontaneous
  Country: US (occurrence: None)
  Receive Date: 20160506
  Receipt Date: 20160506
  Transmission Date: 20160815
  Serious: Yes (Other)
  Sender: FDA-Public Use
  Company Number: None

PATIENT
  Age: 35 Year
  Sex: Female
  Weight: 56.2 kg

DRUGS (5)
  1. KLONOPIN [Concomitant]
     Active Substance: CLONAZEPAM
  2. LITHIUM. [Concomitant]
     Active Substance: LITHIUM
  3. ABILIFY [Suspect]
     Active Substance: ARIPIPRAZOLE
     Indication: BIPOLAR I DISORDER
     Dosage: 5MG+2MG 1 TABLET OF BOTH STRENGTHS ONCE DAILY ORAL TABLET
     Route: 048
     Dates: start: 20150429, end: 20160504
  4. COGENTIN [Concomitant]
     Active Substance: BENZTROPINE MESYLATE
  5. HALDOL [Concomitant]
     Active Substance: HALOPERIDOL

REACTIONS (2)
  - Hypomania [None]
  - Insomnia [None]
